FAERS Safety Report 14589811 (Version 3)
Quarter: 2018Q2

REPORT INFORMATION
  Report Type: Spontaneous
  Country: US (occurrence: US)
  Receive Date: 20180302
  Receipt Date: 20180413
  Transmission Date: 20180711
  Serious: No
  Sender: FDA-Public Use
  Company Number: US-AMGEN-USASP2018028039

PATIENT
  Age: 24 Year
  Sex: Female
  Weight: 67.12 kg

DRUGS (1)
  1. ENBREL [Suspect]
     Active Substance: ETANERCEPT
     Indication: JUVENILE IDIOPATHIC ARTHRITIS
     Dosage: 50 MG, QWK
     Route: 065
     Dates: start: 201802, end: 2018

REACTIONS (6)
  - Accidental exposure to product [Unknown]
  - Incorrect dose administered by device [Unknown]
  - Injection site reaction [Unknown]
  - Malaise [Unknown]
  - Wrong technique in product usage process [Unknown]
  - Rash generalised [Unknown]

NARRATIVE: CASE EVENT DATE: 2018
